FAERS Safety Report 5402400-X (Version None)
Quarter: 2007Q3

REPORT INFORMATION
  Report Type: 
  Country: None (occurrence: None)
  Receive Date: 20070730
  Receipt Date: 20070730
  Transmission Date: 20080115
  Serious: Yes (Other)
  Sender: FDA-Public Use
  Company Number: None

PATIENT
  Age: 70 Year
  Sex: Male
  Weight: 85.2762 kg

DRUGS (1)
  1. AVANDAMET [Suspect]

REACTIONS (2)
  - ASTHENIA [None]
  - OEDEMA PERIPHERAL [None]
